FAERS Safety Report 21781736 (Version 2)
Quarter: 2023Q1

REPORT INFORMATION
  Report Type: Report from Study
  Country: JP (occurrence: JP)
  Receive Date: 20221227
  Receipt Date: 20230110
  Transmission Date: 20230417
  Serious: Yes (Hospitalization, Other)
  Sender: FDA-Public Use
  Company Number: JP-CHUGAI-2022051346

PATIENT
  Age: 57 Year
  Sex: Female
  Weight: 46.3 kg

DRUGS (9)
  1. BEVACIZUMAB [Suspect]
     Active Substance: BEVACIZUMAB
     Indication: Hormone receptor positive HER2 negative breast cancer
     Dosage: DAY1, 15
     Route: 041
     Dates: start: 20220810, end: 20221207
  2. ATEZOLIZUMAB [Suspect]
     Active Substance: ATEZOLIZUMAB
     Indication: Hormone receptor positive HER2 negative breast cancer
     Dosage: 840 MILLIGRAM, DAY1, 15
     Route: 041
     Dates: start: 20220810, end: 20221207
  3. PACLITAXEL [Suspect]
     Active Substance: PACLITAXEL
     Indication: Hormone receptor positive HER2 negative breast cancer
     Dosage: DAY1, 8, 15
     Route: 041
     Dates: start: 20220810, end: 20221214
  4. URSODIOL [Concomitant]
     Active Substance: URSODIOL
     Indication: Hepatic steatosis
     Dosage: 100 MILLIGRAM, TID
     Route: 048
     Dates: start: 20210402
  5. URSODIOL [Concomitant]
     Active Substance: URSODIOL
     Indication: Metastases to liver
  6. CALCIUM CARBONATE\CHOLECALCIFEROL\MAGNESIUM CARBONATE [Concomitant]
     Active Substance: CALCIUM CARBONATE\CHOLECALCIFEROL\MAGNESIUM CARBONATE
     Indication: Prophylaxis
     Dosage: 2 DOSAGE FORM, QD
     Route: 048
     Dates: start: 20180502
  7. SODIUM BICARBONATE;SODIUM GUALENATE HYDRATE [Concomitant]
     Indication: Prophylaxis
     Dosage: 1 DOSAGE FORM, PRN
     Dates: start: 2021
  8. AZILSARTAN KAMEDOXOMIL [Concomitant]
     Active Substance: AZILSARTAN KAMEDOXOMIL
     Indication: Hypertension
     Dosage: 20 MILLIGRAM, QD
     Route: 048
     Dates: start: 20220809
  9. AMLODIPINE BESYLATE [Concomitant]
     Active Substance: AMLODIPINE BESYLATE
     Indication: Hypertension
     Dosage: 5 MILLIGRAM, QD
     Route: 048
     Dates: start: 20221116

REACTIONS (2)
  - Interstitial lung disease [Recovering/Resolving]
  - Bone lesion [Unknown]
